FAERS Safety Report 21951992 (Version 1)
Quarter: 2023Q1

REPORT INFORMATION
  Report Type: Report from Study
  Country: US (occurrence: US)
  Receive Date: 20230203
  Receipt Date: 20230203
  Transmission Date: 20230418
  Serious: No
  Sender: FDA-Public Use
  Company Number: US-EXELIXIS-CABO-22048209

PATIENT
  Age: 48 Year
  Sex: Female

DRUGS (9)
  1. CABOMETYX [Suspect]
     Active Substance: CABOZANTINIB S-MALATE
     Indication: Renal cancer
     Dosage: 60 MG, QD
     Route: 048
     Dates: start: 20211210
  2. FOLIC ACID [Concomitant]
     Active Substance: FOLIC ACID
  3. ASCORBIC ACID\BIOTIN\CALCIUM PANTOTHENATE\CYANOCOBALAMIN\FOLIC ACID\NI [Concomitant]
     Active Substance: ASCORBIC ACID\BIOTIN\CALCIUM PANTOTHENATE\CYANOCOBALAMIN\FOLIC ACID\NIACINAMIDE\PYRIDOXINE HYDROCHLO
  4. METOPROLOL [Concomitant]
     Active Substance: METOPROLOL
  5. ATROVENT [Concomitant]
     Active Substance: IPRATROPIUM BROMIDE
  6. ELIQUIS [Concomitant]
     Active Substance: APIXABAN
  7. FLONASE [Concomitant]
     Active Substance: FLUTICASONE PROPIONATE
  8. LACTULOSE [Concomitant]
     Active Substance: LACTULOSE
  9. AMLODIPINE [Concomitant]
     Active Substance: AMLODIPINE BESYLATE

REACTIONS (3)
  - Skin discolouration [Unknown]
  - Skin exfoliation [Unknown]
  - Blood pressure increased [Unknown]

NARRATIVE: CASE EVENT DATE: 20211210
